FAERS Safety Report 16835972 (Version 13)
Quarter: 2022Q2

REPORT INFORMATION
  Report Type: Report from Study
  Country: CA (occurrence: CA)
  Receive Date: 20190920
  Receipt Date: 20220513
  Transmission Date: 20220721
  Serious: Yes (Hospitalization)
  Sender: FDA-Public Use
  Company Number: PHHY2018CA006159

PATIENT
  Age: 46 Year
  Sex: Female

DRUGS (13)
  1. COSENTYX [Suspect]
     Active Substance: SECUKINUMAB
     Indication: Ankylosing spondylitis
     Dosage: 300 MG, QMO
     Route: 058
     Dates: start: 20170912
  2. COSENTYX [Suspect]
     Active Substance: SECUKINUMAB
     Dosage: 300 MG, QMO
     Route: 058
     Dates: start: 20171224
  3. COSENTYX [Suspect]
     Active Substance: SECUKINUMAB
     Dosage: 450 MG, QMO
     Route: 058
     Dates: start: 20211124
  4. COSENTYX [Suspect]
     Active Substance: SECUKINUMAB
     Dosage: 300 MG, QMO
     Route: 058
     Dates: start: 20220124
  5. COSENTYX [Suspect]
     Active Substance: SECUKINUMAB
     Dosage: 150 MG, Q2W
     Route: 065
     Dates: start: 20220216
  6. REMICADE [Suspect]
     Active Substance: INFLIXIMAB
     Indication: Product used for unknown indication
     Dosage: UNK
     Route: 065
  7. HYDROMORPHONE [Concomitant]
     Active Substance: HYDROMORPHONE
     Indication: Product used for unknown indication
     Dosage: UNK
     Route: 065
  8. CELEBREX [Concomitant]
     Active Substance: CELECOXIB
     Indication: Product used for unknown indication
     Dosage: UNK
     Route: 065
  9. IBUPROFEN [Concomitant]
     Active Substance: IBUPROFEN
     Indication: Product used for unknown indication
     Dosage: UNK
     Route: 065
  10. NAPROXEN [Concomitant]
     Active Substance: NAPROXEN
     Indication: Product used for unknown indication
     Dosage: UNK
     Route: 065
  11. GABAPENTIN [Concomitant]
     Active Substance: GABAPENTIN
     Indication: Product used for unknown indication
     Dosage: UNK (FIBRISTAL)
     Route: 065
  12. ULIPRISTAL [Concomitant]
     Active Substance: ULIPRISTAL
     Indication: Product used for unknown indication
     Dosage: UNK
     Route: 065
  13. COPAXONE [Concomitant]
     Active Substance: GLATIRAMER ACETATE
     Indication: Product used for unknown indication
     Dosage: UNK (TEVA CANADA LIMITED)
     Route: 058
     Dates: start: 2018

REACTIONS (35)
  - Pelvic pain [Recovering/Resolving]
  - Cardiac disorder [Recovering/Resolving]
  - Multiple sclerosis [Unknown]
  - Asthenia [Unknown]
  - Hypoaesthesia [Unknown]
  - Thyroid disorder [Unknown]
  - Hypersensitivity [Recovering/Resolving]
  - Dehydration [Unknown]
  - Back pain [Unknown]
  - Abdominal pain upper [Unknown]
  - Nausea [Not Recovered/Not Resolved]
  - Arthralgia [Unknown]
  - Influenza like illness [Not Recovered/Not Resolved]
  - Pain [Unknown]
  - Pyrexia [Unknown]
  - Rhinorrhoea [Unknown]
  - Myalgia [Not Recovered/Not Resolved]
  - Fatigue [Unknown]
  - Faeces discoloured [Unknown]
  - Dyspnoea [Unknown]
  - Pollakiuria [Unknown]
  - Chills [Unknown]
  - Dizziness [Unknown]
  - Pain in extremity [Unknown]
  - Burning sensation [Unknown]
  - Tremor [Unknown]
  - Neck pain [Unknown]
  - Joint swelling [Unknown]
  - Discomfort [Unknown]
  - Musculoskeletal stiffness [Unknown]
  - Tenderness [Unknown]
  - Adverse drug reaction [Unknown]
  - Diarrhoea [Unknown]
  - Incorrect dose administered [Unknown]
  - Off label use [Unknown]

NARRATIVE: CASE EVENT DATE: 20180301
